FAERS Safety Report 8003489-4 (Version None)
Quarter: 2011Q4

REPORT INFORMATION
  Report Type: 
  Country: None (occurrence: None)
  Receive Date: 20111222
  Receipt Date: 20111219
  Transmission Date: 20120403
  Serious: Yes (Other)
  Sender: FDA-Public Use
  Company Number: US-PFIZER INC-2011308314

PATIENT
  Sex: Female
  Weight: 63.039 kg

DRUGS (3)
  1. ZOLOFT [Suspect]
     Indication: DEPRESSION
     Dosage: 25 MG, 1X/DAY
     Route: 048
     Dates: start: 20110901, end: 20110901
  2. ZOLOFT [Suspect]
     Indication: EMOTIONAL DISORDER
     Dosage: 25 MG, 1X/DAY
     Route: 048
     Dates: start: 20111201, end: 20111201
  3. KLONOPIN [Concomitant]
     Dosage: UNK, 1X/DAY

REACTIONS (3)
  - ANXIETY [None]
  - DEPRESSION [None]
  - DRUG INEFFECTIVE [None]
